FAERS Safety Report 6043337-5 (Version None)
Quarter: 2009Q1

REPORT INFORMATION
  Report Type: 
  Country: None (occurrence: None)
  Receive Date: 20090120
  Receipt Date: 20080114
  Transmission Date: 20090719
  Serious: Yes (Life-Threatening)
  Sender: FDA-Public Use
  Company Number: GB-TEVA-183869ISR

PATIENT
  Age: 79 Year
  Sex: Female

DRUGS (9)
  1. AMLODIPINE [Suspect]
     Route: 048
  2. LANSOPRAZOLE [Suspect]
     Route: 048
  3. RANITIDINE [Suspect]
     Route: 048
  4. TEMAZEPAM [Suspect]
     Route: 048
  5. ACETYLSALICYLIC ACID SRT [Suspect]
     Route: 048
  6. ATORVASTATIN CALCIUM [Suspect]
     Route: 048
  7. SERETIDE [Suspect]
     Indication: ASTHMA
     Dosage: 4 DF
     Route: 055
  8. VALSARTAN [Suspect]
     Route: 048
  9. ALBUTEROL [Suspect]
     Indication: ASTHMA
     Route: 055

REACTIONS (2)
  - ASTHMA [None]
  - LOWER RESPIRATORY TRACT INFECTION [None]
